FAERS Safety Report 24391003 (Version 1)
Quarter: 2024Q4

REPORT INFORMATION
  Report Type: Spontaneous
  Country: IN (occurrence: IN)
  Receive Date: 20241003
  Receipt Date: 20241003
  Transmission Date: 20250114
  Serious: No
  Sender: ALKEM
  Company Number: IN-ALKEM LABORATORIES LIMITED-IN-ALKEM-2024-00273

PATIENT
  Sex: Male

DRUGS (1)
  1. TAMSULOSIN HYDROCHLORIDE [Suspect]
     Active Substance: TAMSULOSIN HYDROCHLORIDE
     Indication: Lower urinary tract symptoms
     Dosage: 0.4 MILLIGRAM
     Route: 065

REACTIONS (1)
  - Myalgia [Unknown]
